FAERS Safety Report 9780002 (Version 1)
Quarter: 2013Q4

REPORT INFORMATION
  Report Type: Spontaneous
  Country: US (occurrence: US)
  Receive Date: 20131223
  Receipt Date: 20131223
  Transmission Date: 20140711
  Serious: Yes (Death, Hospitalization)
  Sender: FDA-Public Use
  Company Number: US-GLAXOSMITHKLINE-A1054303A

PATIENT
  Age: 75 Year
  Sex: Female

DRUGS (3)
  1. ARIXTRA [Suspect]
     Indication: THROMBOSIS
     Dosage: 5MG PER DAY
     Route: 065
     Dates: start: 201307, end: 201311
  2. DILAUDID [Concomitant]
  3. ATIVAN [Concomitant]

REACTIONS (3)
  - Cervix carcinoma [Fatal]
  - Metastasis [Unknown]
  - Hospice care [Unknown]
